FAERS Safety Report 25611451 (Version 1)
Quarter: 2025Q3

REPORT INFORMATION
  Report Type: Spontaneous
  Country: US (occurrence: US)
  Receive Date: 20250728
  Receipt Date: 20250728
  Transmission Date: 20251021
  Serious: Yes (Death)
  Sender: ROCHE
  Company Number: US-ROCHE-10000348561

PATIENT
  Age: 90 Year
  Sex: Female

DRUGS (1)
  1. HYALURONIDASE (HUMAN RECOMBINANT)\RITUXIMAB [Suspect]
     Active Substance: HYALURONIDASE (HUMAN RECOMBINANT)\RITUXIMAB
     Indication: Non-Hodgkin^s lymphoma
     Route: 042

REACTIONS (1)
  - Death [Fatal]
